FAERS Safety Report 12219045 (Version 1)
Quarter: 2016Q1

REPORT INFORMATION
  Report Type: Spontaneous
  Country: PL (occurrence: PL)
  Receive Date: 20160329
  Receipt Date: 20160329
  Transmission Date: 20160526
  Serious: Yes (Hospitalization)
  Sender: FDA-Public Use
  Company Number: PHHY2016PL039041

PATIENT
  Age: 40 Year
  Sex: Female

DRUGS (5)
  1. TAMOXIFEN [Suspect]
     Active Substance: TAMOXIFEN
     Indication: BREAST CANCER
     Dosage: 20 MG, UNK
     Route: 065
     Dates: start: 201207
  2. GENTAMYCINE [Suspect]
     Active Substance: GENTAMICIN
     Indication: CELLULITIS
     Route: 065
  3. BETALOC ZOK [Suspect]
     Active Substance: METOPROLOL SUCCINATE
     Indication: HYPERTENSION
     Route: 065
  4. OSPEN [Suspect]
     Active Substance: PENICILLIN V
     Indication: BREAST INFLAMMATION
     Route: 065
  5. ZOLADEX [Suspect]
     Active Substance: GOSERELIN ACETATE
     Indication: BREAST CANCER
     Dosage: 3.6 MG, UNK
     Route: 065
     Dates: start: 201207

REACTIONS (5)
  - Headache [Unknown]
  - Blood pressure increased [Unknown]
  - Inflammation [Unknown]
  - Erysipelas [Unknown]
  - Palpitations [Unknown]

NARRATIVE: CASE EVENT DATE: 201302
